FAERS Safety Report 18321476 (Version 2)
Quarter: 2020Q4

REPORT INFORMATION
  Report Type: Spontaneous
  Country: CH (occurrence: CH)
  Receive Date: 20200929
  Receipt Date: 20201013
  Transmission Date: 20210113
  Serious: Yes (Life-Threatening, Hospitalization)
  Sender: FDA-Public Use
  Company Number: CH-TEVA-2020-CH-1832794

PATIENT
  Age: 11 Year
  Sex: Male

DRUGS (1)
  1. SULFAMETHOXAZOLE W/TRIMETHOPRIM [Suspect]
     Active Substance: SULFAMETHOXAZOLE\TRIMETHOPRIM
     Indication: OSTEOMYELITIS BACTERIAL
     Dosage: 720 MILLIGRAM DAILY; DOSAGE OF TRIMETHOPRIM-17 MG/KG/D FOR 3 MONTHS
     Route: 048

REACTIONS (1)
  - Acute respiratory distress syndrome [Recovering/Resolving]
